FAERS Safety Report 5457291-8 (Version None)
Quarter: 2007Q3

REPORT INFORMATION
  Report Type: 
  Country: None (occurrence: None)
  Receive Date: 20070918
  Receipt Date: 20070702
  Transmission Date: 20080115
  Serious: No
  Sender: FDA-Public Use
  Company Number: US-ASTRAZENECA-2007UW01944

PATIENT
  Age: 12089 Day
  Sex: Female
  Weight: 104.5 kg

DRUGS (29)
  1. SEROQUEL [Suspect]
     Indication: SCHIZOAFFECTIVE DISORDER
     Route: 048
     Dates: start: 20040101
  2. SEROQUEL [Suspect]
     Dosage: 300 TO 450 MG
     Route: 048
     Dates: start: 20050414
  3. GEODON [Concomitant]
     Dates: start: 20050428
  4. AMBIEN [Concomitant]
  5. COMBIVENT [Concomitant]
  6. PROMETHAZINE [Concomitant]
  7. LISINOPRIL AND HYDROCHLOROTHIAZIDE [Concomitant]
     Dosage: 20/12.5 MG
  8. CEPHALEXIN [Concomitant]
  9. NAPROXEN [Concomitant]
  10. FLUCONAZOLE [Concomitant]
  11. BETAMETHASONE DIP 0.05% LOTN [Concomitant]
  12. CLOTRIMAZOLE-BETHAMETHASONE LOT [Concomitant]
  13. GENTAMICIN-GENTAX 0.3% OPTH OINT [Concomitant]
  14. AZITHROMYCIN [Concomitant]
  15. CYMBALTA [Concomitant]
  16. METFORMIN ER [Concomitant]
  17. CLONAZEPAM [Concomitant]
  18. NICOTINE 23KG/24 PATCH [Concomitant]
     Dosage: 23KG/24H
  19. FLOVENT HFA 130 MCG INH 12G [Concomitant]
     Dosage: HFA 130 MCG INH 12 G
  20. ACTOS [Concomitant]
  21. PENICILLIN VK [Concomitant]
  22. ACETAMINOPHEN AND HYDROCODONE BITARTRATE [Concomitant]
     Dosage: 5 MG/ 500 MG
  23. ALBUTEROL INHALER (COMPLETE) [Concomitant]
  24. ADVAIR DISKUS 100/50 [Concomitant]
     Dosage: 100/50 MCG {GREEN}
  25. SIMVASTATIN [Concomitant]
  26. KETOROLAC TROMETHAMINE [Concomitant]
  27. HYDROCHLOROTHIAZIDE [Concomitant]
  28. ETODOLAC ER [Concomitant]
  29. CYCLOBENZAPRINE HCL [Concomitant]

REACTIONS (3)
  - BLOOD CHOLESTEROL INCREASED [None]
  - OBESITY [None]
  - TYPE 2 DIABETES MELLITUS [None]
